FAERS Safety Report 7356077-7 (Version None)
Quarter: 2011Q1

REPORT INFORMATION
  Report Type: 
  Country: None (occurrence: None)
  Receive Date: 20110316
  Receipt Date: 20110314
  Transmission Date: 20110831
  Serious: Yes (Other)
  Sender: FDA-Public Use
  Company Number: US-ABBOTT-11P-163-0711385-00

PATIENT
  Sex: Female
  Weight: 147.55 kg

DRUGS (6)
  1. DIOVAN [Concomitant]
     Indication: HYPERTENSION
  2. CELEXA [Concomitant]
     Indication: DEPRESSION
  3. LUNESTA [Concomitant]
     Indication: SLEEP DISORDER THERAPY
  4. PENTASA [Concomitant]
     Indication: CROHN'S DISEASE
  5. ABILIFY [Concomitant]
     Indication: DEPRESSION
  6. HUMIRA [Suspect]
     Indication: CROHN'S DISEASE
     Dates: start: 20080101, end: 20100701

REACTIONS (3)
  - UTERINE CANCER [None]
  - FISTULA [None]
  - MENORRHAGIA [None]
